FAERS Safety Report 6762965-2 (Version None)
Quarter: 2010Q2

REPORT INFORMATION
  Report Type: 
  Country: None (occurrence: None)
  Receive Date: 20100608
  Receipt Date: 20100608
  Transmission Date: 20101027
  Serious: Yes (Hospitalization)
  Sender: FDA-Public Use
  Company Number: None

PATIENT
  Age: 47 Year
  Sex: Male
  Weight: 86.2 kg

DRUGS (1)
  1. SULFAMETHOXAZOLE AND TRIMETHOPRIM [Suspect]
     Indication: INFECTION
     Dosage: MG BID PO
     Route: 048
     Dates: start: 20100426, end: 20100512

REACTIONS (10)
  - ASTHENIA [None]
  - GENITAL LESION [None]
  - HEPATIC ENZYME INCREASED [None]
  - HEPATOTOXICITY [None]
  - HERPES SIMPLEX [None]
  - HIV INFECTION [None]
  - PYREXIA [None]
  - RENAL FAILURE ACUTE [None]
  - TONGUE DISCOLOURATION [None]
  - WEIGHT DECREASED [None]
